FAERS Safety Report 6717767-X (Version None)
Quarter: 2010Q2

REPORT INFORMATION
  Report Type: 
  Country: None (occurrence: None)
  Receive Date: 20100510
  Receipt Date: 20100430
  Transmission Date: 20101027
  Serious: Yes (Other)
  Sender: FDA-Public Use
  Company Number: GXKR2010AR04459

PATIENT
  Age: 68 Year
  Sex: Female

DRUGS (4)
  1. ALENDRONIC ACID (NGX) [Suspect]
     Indication: OSTEOPOROSIS
     Dosage: 10 MG, QD
     Dates: start: 19930101
  2. ALENDRONIC ACID (NGX) [Suspect]
     Dosage: 70 MG, QW
  3. LEVOTHYROXINE SODIUM [Concomitant]
     Indication: GOITRE
     Dosage: 100 UG, QD
  4. CALCIUM [Concomitant]
     Dosage: 500 MG/DAY
     Dates: start: 19930101

REACTIONS (3)
  - FEMORAL NECK FRACTURE [None]
  - FEMUR FRACTURE [None]
  - PELVIC FRACTURE [None]
